FAERS Safety Report 8796972 (Version 1)
Quarter: 2012Q4

REPORT INFORMATION
  Report Type: 
  Country: AR (occurrence: AR)
  Receive Date: 20120920
  Receipt Date: 20120920
  Transmission Date: 20130627
  Serious: Yes (Other)
  Sender: FDA-Public Use
  Company Number: PHHY2012AR080739

PATIENT
  Age: 75 Year
  Sex: Female

DRUGS (1)
  1. EXFORGE [Suspect]
     Indication: HYPERTENSION
     Dosage: 1 DF (160 mg vals and 5 mg amlo), daily
     Dates: start: 2011

REACTIONS (1)
  - Retinal detachment [Recovering/Resolving]
